FAERS Safety Report 16526630 (Version 1)
Quarter: 2019Q3

REPORT INFORMATION
  Report Type: Report from Study
  Country: CA (occurrence: CA)
  Receive Date: 20190703
  Receipt Date: 20190703
  Transmission Date: 20191004
  Serious: Yes (Death)
  Sender: FDA-Public Use
  Company Number: CA-JNJFOC-20190622617

PATIENT
  Age: 66 Year
  Sex: Female
  Weight: 43.5 kg

DRUGS (2)
  1. REMICADE [Suspect]
     Active Substance: INFLIXIMAB
     Indication: CROHN^S DISEASE
     Route: 042
     Dates: start: 20100526
  2. REMICADE [Suspect]
     Active Substance: INFLIXIMAB
     Route: 042

REACTIONS (5)
  - Lung neoplasm [Fatal]
  - Pleural effusion [Fatal]
  - Product use issue [Unknown]
  - Pulmonary embolism [Fatal]
  - Off label use [Unknown]

NARRATIVE: CASE EVENT DATE: 20100526
